FAERS Safety Report 9496785 (Version 2)
Quarter: 2013Q4

REPORT INFORMATION
  Report Type: Spontaneous
  Country: RE (occurrence: FR)
  Receive Date: 20130904
  Receipt Date: 20131024
  Transmission Date: 20140711
  Serious: Yes (Life-Threatening, Hospitalization)
  Sender: FDA-Public Use
  Company Number: RE-ASTRAZENECA-2013SE66007

PATIENT
  Age: 593 Month
  Sex: Male

DRUGS (5)
  1. BRILIQUE [Suspect]
     Indication: MYOCARDIAL INFARCTION
     Route: 048
     Dates: start: 20130214, end: 20130719
  2. ASPEGIC [Concomitant]
     Route: 048
  3. TRIATEC [Concomitant]
     Route: 048
  4. TENORMINE [Concomitant]
     Route: 048
  5. ESOMEPRAZOLE [Concomitant]
     Route: 048

REACTIONS (2)
  - Thrombocytopenia [Recovered/Resolved]
  - Cerebral haematoma [Recovered/Resolved]
